FAERS Safety Report 4971865-X (Version None)
Quarter: 2006Q2

REPORT INFORMATION
  Report Type: 
  Country: None (occurrence: None)
  Receive Date: 20060413
  Receipt Date: 20050304
  Transmission Date: 20061013
  Serious: Yes (Hospitalization)
  Sender: FDA-Public Use
  Company Number: US-MERCK-0503USA00942

PATIENT
  Age: 49 Year
  Sex: Male
  Weight: 145 kg

DRUGS (8)
  1. VIOXX [Suspect]
     Indication: ARTHRALGIA
     Route: 048
     Dates: start: 20020219, end: 20030611
  2. VIOXX [Suspect]
     Route: 048
     Dates: start: 20030611, end: 20030619
  3. VIOXX [Suspect]
     Indication: ARTHRITIS
     Route: 048
     Dates: start: 20020219, end: 20030611
  4. VIOXX [Suspect]
     Route: 048
     Dates: start: 20030611, end: 20030619
  5. SYNTHROID [Concomitant]
     Route: 065
  6. ALLOPURINOL [Concomitant]
     Route: 065
  7. COLCHICINE [Concomitant]
     Route: 065
  8. ACIPHEX [Concomitant]
     Route: 065

REACTIONS (10)
  - CORONARY ARTERY DISEASE [None]
  - CORONARY ARTERY OCCLUSION [None]
  - DRUG EFFECT DECREASED [None]
  - FOOT FRACTURE [None]
  - GASTROOESOPHAGEAL REFLUX DISEASE [None]
  - GOUT [None]
  - HYPERCHOLESTEROLAEMIA [None]
  - HYPERTENSION [None]
  - MYOCARDIAL INFARCTION [None]
  - SINUS BRADYCARDIA [None]
